FAERS Safety Report 8892133 (Version 1)
Quarter: 2012Q4

REPORT INFORMATION
  Report Type: 
  Country: US (occurrence: US)
  Receive Date: 20121107
  Receipt Date: 20121107
  Transmission Date: 20130627
  Serious: No
  Sender: FDA-Public Use
  Company Number: US-AMGEN-USASP2011057972

PATIENT
  Age: 63 Year
  Sex: Male
  Weight: 140.59 kg

DRUGS (9)
  1. ENBREL [Suspect]
     Indication: PRODUCT USED FOR UNKNOWN INDICATION
     Dosage: 50 mg, qwk
     Route: 058
  2. TRAZODONE [Concomitant]
     Dosage: 50 mg, UNK
     Route: 048
  3. METOPROLOL [Concomitant]
     Dosage: 25 mg, UNK
     Route: 048
  4. METHOTREXATE [Concomitant]
     Dosage: 2.5 mg, UNK
     Route: 048
  5. PRAVASTATIN [Concomitant]
     Dosage: 10 mg, UNK
     Route: 048
  6. LISINOPRIL [Concomitant]
     Dosage: 2.5 mg, UNK
     Route: 048
  7. ASPIRIN [Concomitant]
     Dosage: 325 mg, UNK
     Route: 048
  8. NAPROXEN                           /00256202/ [Concomitant]
     Dosage: 375 mg, UNK
     Route: 048
  9. FOLIC ACID [Concomitant]
     Dosage: 1 mg, UNK
     Route: 048

REACTIONS (2)
  - Insomnia [Unknown]
  - Upper respiratory tract infection [Unknown]
